FAERS Safety Report 21565172 (Version 1)
Quarter: 2022Q4

REPORT INFORMATION
  Report Type: Spontaneous
  Country: US (occurrence: US)
  Receive Date: 20221108
  Receipt Date: 20221108
  Transmission Date: 20230113
  Serious: Yes (Other)
  Sender: FDA-Public Use
  Company Number: US-009507513-2211USA000850

PATIENT
  Age: 55 Year
  Sex: Female

DRUGS (1)
  1. KEYTRUDA [Suspect]
     Active Substance: PEMBROLIZUMAB
     Indication: Transitional cell carcinoma recurrent
     Dosage: 200 MILLIGRAM, Q3W
     Route: 042

REACTIONS (2)
  - Immune-mediated lung disease [Recovered/Resolved]
  - Meibomian gland dysfunction [Not Recovered/Not Resolved]
